FAERS Safety Report 6915519-9 (Version None)
Quarter: 2010Q3

REPORT INFORMATION
  Report Type: 
  Country: None (occurrence: None)
  Receive Date: 20100804
  Receipt Date: 20100721
  Transmission Date: 20110219
  Serious: Yes (Hospitalization, Other)
  Sender: FDA-Public Use
  Company Number: 2010AP001402

PATIENT
  Age: 71 Year
  Sex: Female

DRUGS (12)
  1. AMLODIPINE BESYLATE [Suspect]
     Dosage: 27 TAB; PO
     Route: 048
  2. ACETYLSALICYLIC ACID SRT [Concomitant]
  3. ALBUTEROL SULFATE AUTOHALER [Concomitant]
  4. FEXOFENADINE [Concomitant]
  5. FERROUS SULFATE [Concomitant]
  6. LISINOPRIL [Concomitant]
  7. SENNA [Concomitant]
  8. SIMVASTATIN [Concomitant]
  9. TIOTROPIUM [Concomitant]
  10. TRAZODONE HCL [Concomitant]
  11. HYDROCODONE BITARTRATE [Concomitant]
  12. ACETAMINOPHEN [Concomitant]

REACTIONS (8)
  - ANAEMIA [None]
  - BLOOD CALCIUM DECREASED [None]
  - HYPONATRAEMIA [None]
  - HYPOTENSION [None]
  - OLIGURIA [None]
  - OVERDOSE [None]
  - PULMONARY OEDEMA [None]
  - RESPIRATORY FAILURE [None]
